FAERS Safety Report 4950120-8 (Version None)
Quarter: 2006Q1

REPORT INFORMATION
  Report Type: 
  Country: None (occurrence: None)
  Receive Date: 20060322
  Receipt Date: 20060222
  Transmission Date: 20060701
  Serious: Yes (Hospitalization)
  Sender: FDA-Public Use
  Company Number: 2006CG00380

PATIENT
  Age: 69 Year
  Sex: Male
  Weight: 80 kg

DRUGS (14)
  1. DIPRIVAN [Suspect]
     Indication: ANAESTHESIA
     Route: 042
     Dates: start: 20060126, end: 20060126
  2. ZINNAT [Suspect]
     Route: 030
     Dates: start: 20060126, end: 20060126
  3. SUFENTA [Suspect]
     Indication: ANAESTHESIA
     Route: 042
     Dates: start: 20060126, end: 20060126
  4. SEVORANE [Suspect]
     Indication: ANAESTHESIA
     Route: 055
     Dates: start: 20060126, end: 20060126
  5. TRACRIUM [Suspect]
     Indication: ANAESTHESIA
     Route: 042
     Dates: start: 20060126, end: 20060126
  6. PROFENID [Suspect]
     Route: 048
     Dates: start: 20060126
  7. PRIMPERAN TAB [Suspect]
     Dates: start: 20060126
  8. SPASFON [Suspect]
     Dates: start: 20060126
  9. PERFALGAN [Suspect]
     Dates: start: 20060126
  10. ACUPAN [Suspect]
     Dates: start: 20060126
  11. ZOXAN [Concomitant]
  12. PIASCLEDINE [Concomitant]
  13. CARBOSYMAG [Concomitant]
  14. PIRACETAM [Concomitant]

REACTIONS (6)
  - ANAEMIA [None]
  - ASTHENIA [None]
  - OEDEMA PERIPHERAL [None]
  - PRURITUS [None]
  - RASH [None]
  - WEIGHT DECREASED [None]
